FAERS Safety Report 4801976-0 (Version None)
Quarter: 2005Q4

REPORT INFORMATION
  Report Type: 
  Country: None (occurrence: None)
  Receive Date: 20051012
  Receipt Date: 20050930
  Transmission Date: 20060501
  Serious: Yes (Hospitalization)
  Sender: FDA-Public Use
  Company Number: US016127

PATIENT
  Age: 72 Year
  Sex: Male
  Weight: 93.441 kg

DRUGS (13)
  1. TRISENOX [Suspect]
     Indication: MULTIPLE MYELOMA
     Dosage: 24 MG QD INTRAVENOUS DRIP
     Route: 041
     Dates: start: 20050815, end: 20050819
  2. THALIDOMIDE [Suspect]
     Indication: MULTIPLE MYELOMA
     Dosage: 100 MG QD ORAL
     Route: 048
     Dates: start: 20050815, end: 20050822
  3. ZOMETA [Concomitant]
  4. PROCRIT [Concomitant]
  5. PLAVIX [Concomitant]
  6. ATENOLOL [Concomitant]
  7. NIACIN [Concomitant]
  8. POTASSIUM CHLORIDE [Concomitant]
  9. ACYCLOVIR [Concomitant]
  10. LISINOPRIL [Concomitant]
  11. RESTORIL [Concomitant]
  12. SENOKOT [Concomitant]
  13. CADUET [Concomitant]

REACTIONS (4)
  - ASTHENIA [None]
  - CARDIAC FAILURE CONGESTIVE [None]
  - HYPONATRAEMIA [None]
  - HYPOPHOSPHATAEMIA [None]
